FAERS Safety Report 13509225 (Version 2)
Quarter: 2017Q2

REPORT INFORMATION
  Report Type: Spontaneous
  Country: PL (occurrence: PL)
  Receive Date: 20170503
  Receipt Date: 20170524
  Transmission Date: 20170830
  Serious: Yes (Death, Life-Threatening, Hospitalization, Other)
  Sender: FDA-Public Use
  Company Number: PL-B.I. PHARMACEUTICALS,INC./RIDGEFIELD-2017-BI-023908

PATIENT
  Age: 81 Year
  Sex: Male

DRUGS (6)
  1. METOCARD ZK [Concomitant]
     Active Substance: METOPROLOL TARTRATE
     Indication: PRODUCT USED FOR UNKNOWN INDICATION
     Route: 065
  2. AMLOZEK [Concomitant]
     Active Substance: AMLODIPINE BESYLATE
     Indication: PRODUCT USED FOR UNKNOWN INDICATION
     Route: 065
  3. PRADAXA [Suspect]
     Active Substance: DABIGATRAN ETEXILATE MESYLATE
     Indication: ATRIAL FIBRILLATION
     Route: 065
  4. VIVACE [Concomitant]
     Active Substance: RAMIPRIL
     Indication: PRODUCT USED FOR UNKNOWN INDICATION
     Route: 065
  5. DIUVER [Concomitant]
     Active Substance: TORSEMIDE
     Indication: PRODUCT USED FOR UNKNOWN INDICATION
     Route: 065
  6. INSPRA [Concomitant]
     Active Substance: EPLERENONE
     Indication: PRODUCT USED FOR UNKNOWN INDICATION
     Route: 065

REACTIONS (10)
  - Gastrointestinal inflammation [Unknown]
  - Dehydration [Unknown]
  - Haematochezia [Fatal]
  - Acute kidney injury [Not Recovered/Not Resolved]
  - Gastrointestinal haemorrhage [Fatal]
  - Diarrhoea haemorrhagic [Fatal]
  - Haematemesis [Fatal]
  - Melaena [Fatal]
  - Pseudomembranous colitis [Fatal]
  - Anticoagulation drug level increased [Recovered/Resolved]
